FAERS Safety Report 6410457-2 (Version None)
Quarter: 2009Q4

REPORT INFORMATION
  Report Type: 
  Country: None (occurrence: None)
  Receive Date: 20091022
  Receipt Date: 20091015
  Transmission Date: 20100525
  Serious: Yes (Other)
  Sender: FDA-Public Use
  Company Number: GB-TEVA-212048ISR

PATIENT
  Age: 24 Year
  Sex: Male
  Weight: 79 kg

DRUGS (4)
  1. PHENYTOIN [Suspect]
     Indication: GRAND MAL CONVULSION
     Route: 048
     Dates: start: 20090814, end: 20090930
  2. RALTEGRAVIR [Suspect]
     Route: 048
     Dates: start: 20090902, end: 20090930
  3. VALPROIC ACID [Suspect]
  4. TRIZIVIR [Suspect]
     Dates: start: 20090902, end: 20090930

REACTIONS (4)
  - DERMATITIS EXFOLIATIVE [None]
  - FACE OEDEMA [None]
  - SKIN OEDEMA [None]
  - SUBCUTANEOUS ABSCESS [None]
